FAERS Safety Report 4929215-0 (Version None)
Quarter: 2006Q1

REPORT INFORMATION
  Report Type: 
  Country: None (occurrence: None)
  Receive Date: 20060301
  Receipt Date: 20051117
  Transmission Date: 20060701
  Serious: Yes (Hospitalization)
  Sender: FDA-Public Use
  Company Number: US-MERCK-0511USA03142

PATIENT
  Age: 41 Year
  Sex: Male
  Weight: 123 kg

DRUGS (3)
  1. VIOXX [Suspect]
     Indication: LIMB INJURY
     Route: 048
     Dates: start: 20020101, end: 20040930
  2. VIOXX [Suspect]
     Route: 048
     Dates: start: 20020101, end: 20040930
  3. ASPIRIN [Concomitant]
     Route: 065

REACTIONS (5)
  - ARTHROPATHY [None]
  - CHEST PAIN [None]
  - INJURY [None]
  - MYOCARDIAL INFARCTION [None]
  - STRESS [None]
